FAERS Safety Report 4282652-2 (Version None)
Quarter: 2004Q1

REPORT INFORMATION
  Report Type: 
  Country: None (occurrence: None)
  Receive Date: 20040130
  Receipt Date: 20030121
  Transmission Date: 20041129
  Serious: No
  Sender: FDA-Public Use
  Company Number: US-BRISTOL-MYERS SQUIBB COMPANY-12162913

PATIENT
  Age: 32 Year
  Sex: Male
  Weight: 109 kg

DRUGS (2)
  1. SERZONE [Suspect]
     Indication: DEPRESSION
     Dosage: DECREASED TO 100MG IN AM AND 50MG IN EVENING FOR 5 DAYS, THEN INCREASED TO 100MG BID
     Route: 048
  2. KLONOPIN [Concomitant]
     Dosage: USED ^VERY SPARINGLY^

REACTIONS (2)
  - DRUG WITHDRAWAL SYNDROME [None]
  - HEPATIC ENZYME INCREASED [None]
